FAERS Safety Report 20330864 (Version 1)
Quarter: 2022Q1

REPORT INFORMATION
  Report Type: Spontaneous
  Country: US (occurrence: None)
  Receive Date: 20220113
  Receipt Date: 20220113
  Transmission Date: 20220423
  Serious: Yes (Other)
  Sender: FDA-Public Use
  Company Number: 2022A009153

PATIENT
  Sex: Female
  Weight: 72.6 kg

DRUGS (1)
  1. BRILINTA [Suspect]
     Active Substance: TICAGRELOR
     Indication: Cardiac disorder
     Route: 048

REACTIONS (1)
  - Neoplasm malignant [Not Recovered/Not Resolved]
